FAERS Safety Report 5861911-3 (Version None)
Quarter: 2008Q3

REPORT INFORMATION
  Report Type: 
  Country: None (occurrence: None)
  Receive Date: 20080827
  Receipt Date: 20080722
  Transmission Date: 20090109
  Serious: No
  Sender: FDA-Public Use
  Company Number: US-ABBOTT-08P-163-0464465-00

PATIENT
  Sex: Male
  Weight: 83.536 kg

DRUGS (9)
  1. COATED PDS [Suspect]
     Indication: HIGH DENSITY LIPOPROTEIN DECREASED
     Route: 048
     Dates: start: 20050101, end: 20080709
  2. COATED PDS [Suspect]
     Dates: start: 20080710
  3. RAMIPRIL [Concomitant]
     Indication: HYPERTENSION
  4. CANDESARTAN CILEXETIL [Concomitant]
     Indication: HYPERTENSION
  5. METOPROLOL SUCCINATE [Concomitant]
     Indication: ATRIAL FIBRILLATION
  6. METFORMIN HCL [Concomitant]
     Indication: DIABETES MELLITUS
  7. WARFARIN SODIUM [Concomitant]
     Indication: ATRIAL FIBRILLATION
  8. ROSUVASTATIN [Concomitant]
     Indication: BLOOD CHOLESTEROL
  9. ACETYLSALICYLIC ACID SRT [Concomitant]
     Indication: DRUG USE FOR UNKNOWN INDICATION

REACTIONS (2)
  - BLOOD GLUCOSE INCREASED [None]
  - BLOOD PRESSURE DECREASED [None]
